FAERS Safety Report 7222742-5 (Version None)
Quarter: 2011Q1

REPORT INFORMATION
  Report Type: 
  Country: None (occurrence: None)
  Receive Date: 20110106
  Receipt Date: 20110106
  Transmission Date: 20110831
  Serious: No
  Sender: FDA-Public Use
  Company Number: None

PATIENT
  Weight: 73.9363 kg

DRUGS (1)
  1. TOPAMAX [Suspect]

REACTIONS (2)
  - PAIN [None]
  - FACET JOINT SYNDROME [None]
